FAERS Safety Report 21869177 (Version 1)
Quarter: 2023Q1

REPORT INFORMATION
  Report Type: Report from Study
  Country: US (occurrence: US)
  Receive Date: 20230117
  Receipt Date: 20230117
  Transmission Date: 20230418
  Serious: No
  Sender: FDA-Public Use
  Company Number: US-ABBVIE-4240135

PATIENT
  Sex: Female

DRUGS (1)
  1. HUMIRA [Suspect]
     Active Substance: ADALIMUMAB
     Indication: Rheumatoid arthritis
     Route: 058

REACTIONS (10)
  - Nasopharyngitis [Not Recovered/Not Resolved]
  - Arthralgia [Not Recovered/Not Resolved]
  - Ear discomfort [Unknown]
  - Sinus congestion [Unknown]
  - Sinus headache [Unknown]
  - Paranasal sinus discomfort [Unknown]
  - Anxiety [Unknown]
  - Depression [Unknown]
  - Anaemia [Unknown]
  - Diabetes mellitus [Unknown]
